FAERS Safety Report 9464375 (Version 1)
Quarter: 2013Q3

REPORT INFORMATION
  Report Type: Spontaneous
  Country: US (occurrence: US)
  Receive Date: 20130819
  Receipt Date: 20130819
  Transmission Date: 20140515
  Serious: Yes (Death, Other)
  Sender: FDA-Public Use
  Company Number: US-ASTRAZENECA-2013SE63018

PATIENT
  Age: 68 Year
  Sex: Female

DRUGS (2)
  1. MARCAINE WITH EPINEPHRINE [Suspect]
     Indication: CERVICOGENIC HEADACHE
     Dosage: 1:200,000
  2. DEPOMEDROL [Suspect]
     Indication: CERVICOGENIC HEADACHE

REACTIONS (6)
  - Brain oedema [Fatal]
  - Encephalitis [Fatal]
  - Hydrocephalus [Fatal]
  - Brain herniation [Fatal]
  - Quadriplegia [Unknown]
  - Medication error [Unknown]
